FAERS Safety Report 23511245 (Version 3)
Quarter: 2024Q1

REPORT INFORMATION
  Report Type: Report from Study
  Country: MX (occurrence: MX)
  Receive Date: 20240212
  Receipt Date: 20240223
  Transmission Date: 20240410
  Serious: Yes (Other)
  Sender: FDA-Public Use
  Company Number: MX-002147023-NVSC2024MX027356

PATIENT
  Age: 60 Year
  Sex: Female
  Weight: 62 kg

DRUGS (8)
  1. GILENYA [Suspect]
     Active Substance: FINGOLIMOD HYDROCHLORIDE
     Indication: Multiple sclerosis
     Dosage: 0.5 MG, QD
     Route: 048
     Dates: start: 2016, end: 20231217
  2. TEGRETOL [Suspect]
     Active Substance: CARBAMAZEPINE
     Indication: Muscle spasms
     Dosage: 0.5 DOSAGE FORM (200 MG), QD
     Route: 048
     Dates: start: 2014
  3. LYRICA [Concomitant]
     Active Substance: PREGABALIN
     Indication: Fibromyalgia
     Dosage: 1 DOSAGE FORM (150 MG), QD, MANY YEARS AGO
     Route: 048
  4. TRAMADOL HYDROCHLORIDE [Concomitant]
     Active Substance: TRAMADOL HYDROCHLORIDE
     Indication: Fibromyalgia
     Dosage: 10 DROPS, QN (BY NIGHTS)
     Route: 048
  5. LEVOTHYROXINE SODIUM [Concomitant]
     Active Substance: LEVOTHYROXINE SODIUM
     Indication: Hypothyroidism
     Dosage: 1 DOSAGE FORM (75 MCG), QD, MANY YEARS AGO
     Route: 048
  6. METEOSPASMYL [Concomitant]
     Indication: Gastritis
     Dosage: 1 DOSAGE FORM, QD
     Route: 065
  7. METEOSPASMYL [Concomitant]
     Indication: Reflux gastritis
  8. RIVOTRIL [Concomitant]
     Active Substance: CLONAZEPAM
     Indication: Muscle relaxant therapy
     Dosage: 8 DRP, QN (AT NIGHT)
     Route: 048

REACTIONS (12)
  - Multiple sclerosis relapse [Recovered/Resolved]
  - Hypoaesthesia [Recovered/Resolved]
  - Swelling [Unknown]
  - Musculoskeletal stiffness [Recovered/Resolved]
  - Back pain [Unknown]
  - Burning sensation [Unknown]
  - Limb discomfort [Unknown]
  - Paraesthesia [Unknown]
  - Pruritus [Recovering/Resolving]
  - Heart rate decreased [Unknown]
  - Wrong technique in product usage process [Unknown]
  - Product use in unapproved indication [Unknown]

NARRATIVE: CASE EVENT DATE: 20230101
